FAERS Safety Report 7920718-3 (Version None)
Quarter: 2011Q4

REPORT INFORMATION
  Report Type: 
  Country: None (occurrence: None)
  Receive Date: 20111117
  Receipt Date: 20111104
  Transmission Date: 20120403
  Serious: Yes (Hospitalization)
  Sender: FDA-Public Use
  Company Number: US-BAYER-2011-029198

PATIENT
  Age: 45 Year
  Sex: Female
  Weight: 102.4 kg

DRUGS (3)
  1. IBUPROFEN [Concomitant]
  2. YAZ [Suspect]
     Indication: MENSTRUAL CYCLE MANAGEMENT
     Dosage: UNK
     Dates: start: 20070301, end: 20090201
  3. LORTAB [Concomitant]

REACTIONS (6)
  - PAIN IN EXTREMITY [None]
  - INJURY [None]
  - EMOTIONAL DISTRESS [None]
  - MYOCARDIAL INFARCTION [None]
  - CHEST PAIN [None]
  - DYSPNOEA [None]
